FAERS Safety Report 23608574 (Version 3)
Quarter: 2024Q2

REPORT INFORMATION
  Report Type: Spontaneous
  Country: US (occurrence: US)
  Receive Date: 20240308
  Receipt Date: 20240404
  Transmission Date: 20240716
  Serious: No
  Sender: FDA-Public Use
  Company Number: US-Eisai-EC-2024-157746

PATIENT
  Age: 80 Year
  Sex: Female
  Weight: 111 kg

DRUGS (1)
  1. LEQEMBI [Suspect]
     Active Substance: LECANEMAB-IRMB
     Indication: Dementia Alzheimer^s type
     Dosage: DOSE UNKNOWN
     Route: 042
     Dates: start: 20240117

REACTIONS (6)
  - White blood cell count increased [Unknown]
  - Fatigue [Unknown]
  - Headache [Recovered/Resolved]
  - Lethargy [Recovered/Resolved]
  - Infusion related reaction [Recovered/Resolved]
  - Chills [Unknown]

NARRATIVE: CASE EVENT DATE: 20240101
